FAERS Safety Report 24529708 (Version 1)
Quarter: 2024Q4

REPORT INFORMATION
  Report Type: Spontaneous
  Country: CA (occurrence: CA)
  Receive Date: 20241021
  Receipt Date: 20241021
  Transmission Date: 20250115
  Serious: Yes (Hospitalization, Other)
  Sender: CHATTEM
  Company Number: CA-SA-2021SA069879

PATIENT
  Age: 11 Year
  Sex: Male

DRUGS (7)
  1. RANITIDINE HYDROCHLORIDE [Suspect]
     Active Substance: RANITIDINE HYDROCHLORIDE
     Indication: Product used for unknown indication
     Dosage: DOSE DESCRIPTION : 150 MG, QD
     Route: 048
  2. BISACODYL [Suspect]
     Active Substance: BISACODYL
     Indication: Child abuse
     Dosage: DOSE DESCRIPTION : 5 MG, QD
     Route: 048
  3. BISACODYL [Suspect]
     Active Substance: BISACODYL
     Dosage: DOSE DESCRIPTION : 5 MG, QD
  4. DIPHENHYDRAMINE [Suspect]
     Active Substance: DIPHENHYDRAMINE
     Indication: Pruritus
     Dosage: DOSE DESCRIPTION : 12.5 MG, Q6H
     Route: 048
  5. PANTOPRAZOLE [Suspect]
     Active Substance: PANTOPRAZOLE
     Indication: Product used for unknown indication
     Dosage: DOSE DESCRIPTION : 40 MG, QD
     Route: 048
  6. CHOLECALCIFEROL [Suspect]
     Active Substance: CHOLECALCIFEROL
     Indication: Vitamin supplementation
     Dosage: DOSE DESCRIPTION : 2000 IU, QD
     Route: 048
  7. CHOLECALCIFEROL [Suspect]
     Active Substance: CHOLECALCIFEROL

REACTIONS (14)
  - Respiratory depression [Recovered/Resolved]
  - Epidural lipomatosis [Recovered/Resolved]
  - Obesity [Recovered/Resolved]
  - Tenderness [Recovered/Resolved]
  - Juvenile idiopathic arthritis [Recovered/Resolved]
  - Drug dependence [Unknown]
  - Child abuse [Unknown]
  - Drug abuse [Unknown]
  - Drug ineffective [Unknown]
  - Product prescribing error [Unknown]
  - Inappropriate schedule of product administration [Unknown]
  - Intentional product misuse [Unknown]
  - Product use in unapproved indication [Unknown]
  - Product use issue [Unknown]
